FAERS Safety Report 17204841 (Version 1)
Quarter: 2019Q4

REPORT INFORMATION
  Report Type: Spontaneous
  Country: US (occurrence: US)
  Receive Date: 20191226
  Receipt Date: 20191226
  Transmission Date: 20200122
  Serious: No
  Sender: FDA-Public Use
  Company Number: US-009507513-1912USA008035

PATIENT
  Age: 34 Year
  Sex: Female
  Weight: 71.2 kg

DRUGS (3)
  1. NEXPLANON [Suspect]
     Active Substance: ETONOGESTREL
     Dosage: UNK
     Route: 059
  2. NEXPLANON [Suspect]
     Active Substance: ETONOGESTREL
     Indication: CONTRACEPTION
     Dosage: 1 IMPLANT (LEFT), 3 YEARS
     Route: 059
     Dates: end: 20190905
  3. TRAMADOL HYDROCHLORIDE. [Concomitant]
     Active Substance: TRAMADOL HYDROCHLORIDE
     Dosage: UNK
     Dates: start: 2019

REACTIONS (10)
  - Urinary tract infection [Unknown]
  - Medical device site discomfort [Not Recovered/Not Resolved]
  - Menorrhagia [Unknown]
  - Complication associated with device [Unknown]
  - Weight increased [Not Recovered/Not Resolved]
  - Epicondylitis [Not Recovered/Not Resolved]
  - Implant site pain [Unknown]
  - Oligomenorrhoea [Not Recovered/Not Resolved]
  - Metrorrhagia [Not Recovered/Not Resolved]
  - Implant site swelling [Not Recovered/Not Resolved]
